FAERS Safety Report 5472166-6 (Version None)
Quarter: 2007Q3

REPORT INFORMATION
  Report Type: 
  Country: None (occurrence: None)
  Receive Date: 20070925
  Receipt Date: 20070910
  Transmission Date: 20080115
  Serious: Yes (Death, Hospitalization, Other)
  Sender: FDA-Public Use
  Company Number: 200709IM000349

PATIENT
  Age: 40 Year
  Sex: Male

DRUGS (7)
  1. ACTIMMUNE [Suspect]
     Indication: JC VIRUS INFECTION
     Dosage: SUBCUTANEOUS
     Route: 058
  2. ACTIMMUNE [Suspect]
     Indication: PROGRESSIVE MULTIFOCAL LEUKOENCEPHALOPATHY
     Dosage: SUBCUTANEOUS
     Route: 058
  3. PREDNISONE [Suspect]
     Indication: PULMONARY MASS
  4. CIDOFOVIR [Suspect]
     Indication: JC VIRUS INFECTION
     Dosage: INTRAVENOUS
     Route: 042
  5. CIDOFOVIR [Suspect]
     Indication: PROGRESSIVE MULTIFOCAL LEUKOENCEPHALOPATHY
     Dosage: INTRAVENOUS
     Route: 042
  6. IMMUNE GLOBULIN INTRAVENOUS (HUMAN) [Concomitant]
  7. BISOPHOSPHONATES [Concomitant]

REACTIONS (13)
  - BRONCHIECTASIS [None]
  - DERMATITIS PSORIASIFORM [None]
  - DISEASE RECURRENCE [None]
  - GENERAL PHYSICAL HEALTH DETERIORATION [None]
  - INFLUENZA [None]
  - PNEUMOCYSTIS JIROVECI PNEUMONIA [None]
  - PNEUMONIA HAEMOPHILUS [None]
  - PROGRESSIVE MULTIFOCAL LEUKOENCEPHALOPATHY [None]
  - RESPIRATORY DISORDER [None]
  - RESPIRATORY FAILURE [None]
  - SEPSIS [None]
  - SINUSITIS [None]
  - VASCULITIS [None]
